FAERS Safety Report 23480563 (Version 2)
Quarter: 2024Q1

REPORT INFORMATION
  Report Type: Report from Study
  Country: US (occurrence: None)
  Receive Date: 20240205
  Receipt Date: 20240315
  Transmission Date: 20240409
  Serious: Yes (Death, Other)
  Sender: FDA-Public Use
  Company Number: 2024A027227

PATIENT
  Age: 80 Year
  Sex: Male
  Weight: 104.8 kg

DRUGS (1)
  1. FARXIGA [Suspect]
     Active Substance: DAPAGLIFLOZIN PROPANEDIOL
     Indication: Type 2 diabetes mellitus
     Route: 048
     Dates: start: 20220610, end: 20230928

REACTIONS (1)
  - Death [Fatal]

NARRATIVE: CASE EVENT DATE: 20230928
